FAERS Safety Report 17257357 (Version 5)
Quarter: 2020Q1

REPORT INFORMATION
  Report Type: Spontaneous
  Country: US (occurrence: US)
  Receive Date: 20200110
  Receipt Date: 20200116
  Transmission Date: 20200409
  Serious: Yes (Other)
  Sender: FDA-Public Use
  Company Number: US-PFIZER INC-2020005699

PATIENT
  Age: 70 Year
  Sex: Female

DRUGS (2)
  1. AMIODARONE HCL [Suspect]
     Active Substance: AMIODARONE HYDROCHLORIDE
     Indication: ATRIAL FIBRILLATION
     Dosage: UNK
  2. AMIODARONE HCL [Suspect]
     Active Substance: AMIODARONE HYDROCHLORIDE
     Indication: MARFAN^S SYNDROME

REACTIONS (6)
  - Encephalopathy [Recovering/Resolving]
  - Cardiogenic shock [Unknown]
  - Cardiac failure [Unknown]
  - Hyperthyroidism [Unknown]
  - Stress cardiomyopathy [Unknown]
  - Gastrointestinal disorder [Unknown]
